FAERS Safety Report 13603781 (Version 2)
Quarter: 2017Q2

REPORT INFORMATION
  Report Type: Spontaneous
  Country: US (occurrence: US)
  Receive Date: 20170602
  Receipt Date: 20170628
  Transmission Date: 20170830
  Serious: Yes (Life-Threatening, Hospitalization, Other)
  Sender: FDA-Public Use
  Company Number: US-TORRENT-00002776

PATIENT
  Age: 19 Year
  Sex: Male

DRUGS (5)
  1. PHENOBARBITAL. [Suspect]
     Active Substance: PHENOBARBITAL
  2. CLORAZEPATE POTASSIUM [Suspect]
     Active Substance: CLORAZEPATE DIPOTASSIUM
  3. ZONISAMIDE. [Suspect]
     Active Substance: ZONISAMIDE
  4. LACOSAMIDE. [Suspect]
     Active Substance: LACOSAMIDE
  5. LEVETIRACETAM. [Suspect]
     Active Substance: LEVETIRACETAM

REACTIONS (2)
  - Drug ineffective [Unknown]
  - Condition aggravated [Unknown]
